FAERS Safety Report 12489243 (Version 4)
Quarter: 2018Q2

REPORT INFORMATION
  Report Type: Report from Study
  Country: US (occurrence: US)
  Receive Date: 20160622
  Receipt Date: 20180430
  Transmission Date: 20180711
  Serious: Yes (Other)
  Sender: FDA-Public Use
  Company Number: US-JNJFOC-20151201011

PATIENT
  Sex: Female

DRUGS (8)
  1. PRESERVISION [Suspect]
     Active Substance: MINERALS\VITAMINS
     Indication: MACULAR DEGENERATION
     Route: 065
  2. LISINOPRIL. [Concomitant]
     Active Substance: LISINOPRIL
  3. IMBRUVICA [Suspect]
     Active Substance: IBRUTINIB
     Indication: CHRONIC LYMPHOCYTIC LEUKAEMIA
     Route: 048
     Dates: start: 20150612
  4. PRESERVISION [Suspect]
     Active Substance: MINERALS\VITAMINS
     Indication: EYE DISORDER
     Route: 065
  5. LEVOTHYROXINE. [Concomitant]
     Active Substance: LEVOTHYROXINE
  6. LOVASTATIN. [Concomitant]
     Active Substance: LOVASTATIN
  7. TYLENOL [Concomitant]
     Active Substance: ACETAMINOPHEN
  8. PRILOSEC [Concomitant]
     Active Substance: OMEPRAZOLE MAGNESIUM

REACTIONS (7)
  - Cough [Unknown]
  - Macular degeneration [Unknown]
  - Oesophageal spasm [Unknown]
  - Pneumonia [Unknown]
  - Dysphagia [Unknown]
  - Oesophageal stenosis [Unknown]
  - Rhinorrhoea [Unknown]

NARRATIVE: CASE EVENT DATE: 2015
